FAERS Safety Report 21548857 (Version 1)
Quarter: 2022Q4

REPORT INFORMATION
  Report Type: Spontaneous
  Country: CN (occurrence: CN)
  Receive Date: 20221103
  Receipt Date: 20221103
  Transmission Date: 20230113
  Serious: Yes (Death, Other)
  Sender: FDA-Public Use
  Company Number: CN-PFIZER INC-PV202200092314

PATIENT
  Age: 47 Year
  Sex: Male

DRUGS (9)
  1. DIFLUCAN [Interacting]
     Active Substance: FLUCONAZOLE
     Indication: Anti-infective therapy
     Dosage: 0.1 G, 1X/DAY (QD)
     Route: 041
  2. DIFLUCAN [Interacting]
     Active Substance: FLUCONAZOLE
     Indication: Oral fungal infection
     Dosage: 0.2 G, 1X/DAY (QD)
     Route: 041
  3. DIFLUCAN [Interacting]
     Active Substance: FLUCONAZOLE
     Dosage: 0.4 G, 1X/DAY (QD)
     Route: 041
  4. CYCLOSPORINE [Interacting]
     Active Substance: CYCLOSPORINE
     Indication: Immunosuppressant drug therapy
     Dosage: 125 MG, 1X/DAY (QD)
  5. CYCLOSPORINE [Interacting]
     Active Substance: CYCLOSPORINE
     Indication: Immunosuppressant drug therapy
     Dosage: 125 MG, 2X/DAY (Q12H)
     Route: 048
  6. FLUCONAZOLE [Interacting]
     Active Substance: FLUCONAZOLE
     Indication: Anti-infective therapy
     Dosage: 0.3 G,QD8
     Route: 048
  7. MEROPENEM [Concomitant]
     Active Substance: MEROPENEM
     Indication: Anti-infective therapy
     Dosage: UNK
     Route: 041
  8. TEICOPLANIN [Concomitant]
     Active Substance: TEICOPLANIN
     Indication: Anti-infective therapy
     Dosage: UNK
  9. IMIPENEM AND CILASTATIN [Concomitant]
     Active Substance: CILASTATIN SODIUM\IMIPENEM
     Indication: Anti-infective therapy
     Dosage: UNK

REACTIONS (4)
  - Pneumonia [Fatal]
  - Immunosuppression [Fatal]
  - Drug interaction [Unknown]
  - Immunosuppressant drug level increased [Unknown]
